FAERS Safety Report 8640719 (Version 2)
Quarter: 2017Q3

REPORT INFORMATION
  Report Type: Spontaneous
  Country: US (occurrence: US)
  Receive Date: 20120628
  Receipt Date: 20170817
  Transmission Date: 20171128
  Serious: Yes (Hospitalization, Other)
  Sender: FDA-Public Use
  Company Number: US-JNJFOC-20120612883

PATIENT

DRUGS (3)
  1. BORTEZOMIB [Suspect]
     Active Substance: BORTEZOMIB
     Indication: PLASMA CELL MYELOMA
     Dosage: ON DAYS 1, 4, 8 AND 11
     Route: 042
  2. VORINOSTAT [Suspect]
     Active Substance: VORINOSTAT
     Indication: PLASMA CELL MYELOMA
     Dosage: ESCALATING DOSE ON DAYS 4-11 OR 1-14 OF A 3-WEEK CYCLE
     Route: 065
  3. DOXORUBICIN [Suspect]
     Active Substance: DOXORUBICIN
     Indication: PLASMA CELL MYELOMA
     Dosage: ON DAY 4
     Route: 042

REACTIONS (2)
  - Atrial flutter [Unknown]
  - Left ventricular dysfunction [Unknown]
